FAERS Safety Report 6288461-7 (Version None)
Quarter: 2009Q3

REPORT INFORMATION
  Report Type: 
  Country: None (occurrence: None)
  Receive Date: 20090729
  Receipt Date: 20090723
  Transmission Date: 20100115
  Serious: Yes (Other)
  Sender: FDA-Public Use
  Company Number: B0582456A

PATIENT
  Sex: Male

DRUGS (9)
  1. PAXIL [Suspect]
     Indication: DEPRESSION
     Route: 048
     Dates: start: 20090421
  2. SEROQUEL [Concomitant]
     Dosage: 450MG PER DAY
     Route: 048
     Dates: start: 20090101, end: 20090616
  3. SEROQUEL [Concomitant]
     Dosage: 150MG PER DAY
     Route: 048
     Dates: start: 20090701
  4. SEROQUEL [Concomitant]
     Dosage: 50MG PER DAY
     Route: 048
  5. ABILIFY [Concomitant]
     Dosage: 30MG PER DAY
     Route: 048
  6. ROHYPNOL [Concomitant]
     Dosage: 1MG PER DAY
     Route: 048
  7. CHINESE MEDICINE [Concomitant]
     Dosage: 6G PER DAY
     Route: 048
  8. CHINESE MEDICINE [Concomitant]
     Dosage: 15G PER DAY
     Route: 048
  9. MAGMITT [Concomitant]
     Dosage: 1500MG PER DAY
     Route: 048

REACTIONS (4)
  - EXTRAPYRAMIDAL DISORDER [None]
  - LACRIMATION INCREASED [None]
  - MUSCLE RIGIDITY [None]
  - PARKINSONIAN GAIT [None]
